FAERS Safety Report 10763729 (Version 1)
Quarter: 2015Q1

REPORT INFORMATION
  Report Type: Spontaneous
  Country: KR (occurrence: KR)
  Receive Date: 20150204
  Receipt Date: 20150204
  Transmission Date: 20150721
  Serious: Yes (Hospitalization)
  Sender: FDA-Public Use
  Company Number: KR-SA-2015SA011296

PATIENT
  Age: 18 Year
  Sex: Female

DRUGS (1)
  1. LASIX [Suspect]
     Active Substance: FUROSEMIDE
     Indication: WEIGHT DECREASED
     Route: 065

REACTIONS (3)
  - Palpitations [Recovered/Resolved with Sequelae]
  - Drug abuse [Unknown]
  - Drug dependence [Unknown]
